FAERS Safety Report 7648943-X (Version None)
Quarter: 2011Q3

REPORT INFORMATION
  Report Type: 
  Country: None (occurrence: None)
  Receive Date: 20110801
  Receipt Date: 20110727
  Transmission Date: 20111222
  Serious: Yes (Hospitalization)
  Sender: FDA-Public Use
  Company Number: US-BRISTOL-MYERS SQUIBB COMPANY-15710734

PATIENT
  Age: 71 Year
  Sex: Male
  Weight: 111 kg

DRUGS (7)
  1. MULTI-VITAMINS [Concomitant]
  2. TYLENOL-500 [Concomitant]
  3. IPILIMUMAB [Suspect]
     Indication: MALIGNANT MELANOMA
     Dosage: 10MG/KG OVER 90 MINS ON DY 1Q12 WK NO.OF COURSES:3 TOTAL OURSES:3 LAST DOSE:1APR11 CYC:21DY
     Route: 042
     Dates: start: 20110218, end: 20110401
  4. OXYCODONE HCL [Concomitant]
  5. CELEBREX [Concomitant]
  6. GLUCOSAMINE [Concomitant]
  7. GM-CSF [Suspect]
     Indication: MALIGNANT MELANOMA
     Dosage: CYCLE:21DYS 250MCG/DY SQ ON DY 1-14 STOP DT:14APR11 DELAY 7 DAYS NO.OF COU:3 TOTAL OURSE:3
     Route: 058
     Dates: start: 20110218, end: 20110414

REACTIONS (6)
  - BLOOD THYROID STIMULATING HORMONE DECREASED [None]
  - ARTHRALGIA [None]
  - MUSCULAR WEAKNESS [None]
  - DRY SKIN [None]
  - HYPOALBUMINAEMIA [None]
  - ARTHRITIS [None]
